FAERS Safety Report 8815135 (Version 3)
Quarter: 2013Q4

REPORT INFORMATION
  Report Type: Report from Study
  Country: JP (occurrence: JP)
  Receive Date: 20120928
  Receipt Date: 20131205
  Transmission Date: 20140711
  Serious: Yes (Hospitalization)
  Sender: FDA-Public Use
  Company Number: JP-VERTEX PHARMACEUTICAL INC.-2012-021855

PATIENT
  Age: 61 Year
  Sex: Male

DRUGS (11)
  1. VX-950 (TELAPREVIR) [Suspect]
     Indication: CHRONIC HEPATITIS C
     Dosage: 1000 MG, QD
     Route: 048
     Dates: start: 20120720, end: 20120902
  2. RIBAVIRIN [Suspect]
     Indication: CHRONIC HEPATITIS C
     Dosage: 200 MG, QD
     Route: 048
     Dates: end: 20120902
  3. RIBAVIRIN [Suspect]
     Dosage: 200 MG, QD
     Route: 048
  4. PEGINTERFERON ALFA-2B [Suspect]
     Indication: CHRONIC HEPATITIS C
     Dosage: 1.35 ?G/KG,
     Route: 058
     Dates: end: 20120821
  5. PEGINTERFERON ALFA-2B [Suspect]
     Dosage: 1.35 ?G/KG, QW
     Route: 058
     Dates: start: 20120911
  6. URSO [Concomitant]
     Dosage: 600 MG, QD
     Route: 048
  7. OMEPRAL [Concomitant]
     Dosage: 20 MG, QD
     Route: 048
  8. MEDROL [Concomitant]
     Dosage: 2 MG, QD
     Route: 048
  9. CELLCEPT [Concomitant]
     Dosage: 1000 MG, QD
     Route: 048
  10. NU-LOTAN [Concomitant]
     Dosage: 50 MG, QD
     Route: 048
  11. NORVASC [Concomitant]
     Dosage: 5 MG, QD
     Route: 048

REACTIONS (3)
  - Cytomegalovirus enterocolitis [Recovered/Resolved]
  - Cytomegalovirus infection [Recovered/Resolved]
  - Pancreatitis [Recovered/Resolved]
